FAERS Safety Report 5373564-1 (Version None)
Quarter: 2007Q2

REPORT INFORMATION
  Report Type: 
  Country: None (occurrence: None)
  Receive Date: 20070628
  Receipt Date: 20070620
  Transmission Date: 20071010
  Serious: Yes (Hospitalization)
  Sender: FDA-Public Use
  Company Number: US-AMGEN-US230365

PATIENT
  Sex: Female

DRUGS (1)
  1. ENBREL [Suspect]
     Indication: PSORIASIS
     Route: 065
     Dates: start: 20051220, end: 20061215

REACTIONS (4)
  - CARDIAC FAILURE CONGESTIVE [None]
  - KNEE OPERATION [None]
  - OEDEMA PERIPHERAL [None]
  - PNEUMONIA [None]
